FAERS Safety Report 17686196 (Version 1)
Quarter: 2020Q2

REPORT INFORMATION
  Report Type: Spontaneous
  Country: JP (occurrence: JP)
  Receive Date: 20200420
  Receipt Date: 20200420
  Transmission Date: 20200714
  Serious: Yes (Other)
  Sender: FDA-Public Use
  Company Number: JP-FRESENIUS KABI-FK202003895

PATIENT
  Age: 39 Year
  Sex: Female

DRUGS (2)
  1. FAMOTIDINE INJECTION (MANUFACTURER UNKNOWN) [Suspect]
     Active Substance: FAMOTIDINE
     Indication: DRUG THERAPY
     Dosage: UNKNOWN
     Route: 065
  2. METOCLOPRAMIDE (MANUFACTURER UNKNOWN) [Suspect]
     Active Substance: METOCLOPRAMIDE
     Indication: DRUG THERAPY
     Dosage: UNKNOWN
     Route: 065

REACTIONS (2)
  - Anaphylactic shock [Recovered/Resolved]
  - Exposure during pregnancy [Recovered/Resolved]
